FAERS Safety Report 7134987-3 (Version None)
Quarter: 2010Q4

REPORT INFORMATION
  Report Type: 
  Country: None (occurrence: None)
  Receive Date: 20101203
  Receipt Date: 20101123
  Transmission Date: 20110411
  Serious: Yes (Hospitalization, Other)
  Sender: FDA-Public Use
  Company Number: BR-ABBOTT-10P-020-0679215-00

PATIENT
  Sex: Female
  Weight: 58 kg

DRUGS (6)
  1. HUMIRA [Suspect]
     Indication: PSORIATIC ARTHROPATHY
     Route: 058
     Dates: start: 20080101, end: 20100401
  2. UNKNOWN MAGISTRAL FORMULA [Concomitant]
     Indication: PSORIATIC ARTHROPATHY
     Route: 048
  3. FAMOTIDINE [Concomitant]
     Indication: PROPHYLAXIS
     Route: 048
     Dates: start: 20070101
  4. FAMOTIDINE [Concomitant]
     Indication: GASTRIC DISORDER
  5. COMBINED FORMULA: CICLOBENZAPRIN + DIACEREIN [Concomitant]
     Indication: PSORIATIC ARTHROPATHY
     Route: 048
  6. RIVOTRIL [Concomitant]
     Indication: SLEEP DISORDER THERAPY
     Dosage: 1.5 EVERY 24 HOURS
     Route: 048

REACTIONS (22)
  - ABDOMINAL DISTENSION [None]
  - ABDOMINAL HERNIA [None]
  - APTYALISM [None]
  - BLOOD CHOLESTEROL INCREASED [None]
  - BLOOD TRIGLYCERIDES INCREASED [None]
  - BONE NEOPLASM MALIGNANT [None]
  - DENTAL CARIES [None]
  - DEVICE FAILURE [None]
  - DRY MOUTH [None]
  - EROSIVE DUODENITIS [None]
  - EROSIVE OESOPHAGITIS [None]
  - GASTRIC ULCER [None]
  - GASTRITIS EROSIVE [None]
  - HAEMATOCHEZIA [None]
  - IMMUNODEFICIENCY [None]
  - INTESTINAL ULCER [None]
  - MASTICATION DISORDER [None]
  - OEDEMA MOUTH [None]
  - OESOPHAGEAL ULCER [None]
  - OSTEITIS [None]
  - SENSITIVITY OF TEETH [None]
  - VIITH NERVE PARALYSIS [None]
